FAERS Safety Report 18385480 (Version 3)
Quarter: 2021Q1

REPORT INFORMATION
  Report Type: Spontaneous
  Country: US (occurrence: US)
  Receive Date: 20201015
  Receipt Date: 20210201
  Transmission Date: 20210419
  Serious: No
  Sender: FDA-Public Use
  Company Number: US-BEH-2020123358

PATIENT
  Age: 39 Year
  Sex: Female

DRUGS (3)
  1. HIZENTRA [Suspect]
     Active Substance: HUMAN IMMUNOGLOBULIN G
     Indication: HUMORAL IMMUNE DEFECT
     Dosage: 40 MILLILITER, QW
     Route: 042
  2. HIZENTRA [Suspect]
     Active Substance: HUMAN IMMUNOGLOBULIN G
     Indication: ERYTHROMELALGIA
     Dosage: 8 GRAM
     Route: 058
     Dates: start: 20180131
  3. HIZENTRA [Suspect]
     Active Substance: HUMAN IMMUNOGLOBULIN G
     Indication: SJOGREN^S SYNDROME
     Dosage: UNK
     Route: 042
     Dates: start: 20200927, end: 20200927

REACTIONS (9)
  - Intentional product use issue [Unknown]
  - Pruritus [Recovered/Resolved]
  - Injection site pruritus [Unknown]
  - Stress [Unknown]
  - Paraesthesia [Unknown]
  - Rash [Unknown]
  - Injection site pruritus [Recovered/Resolved]
  - No adverse event [Unknown]
  - Off label use [Unknown]

NARRATIVE: CASE EVENT DATE: 20200927
